FAERS Safety Report 9185664 (Version 1)
Quarter: 2013Q1

REPORT INFORMATION
  Report Type: Spontaneous
  Country: US (occurrence: US)
  Receive Date: 20130325
  Receipt Date: 20130325
  Transmission Date: 20140127
  Serious: No
  Sender: FDA-Public Use
  Company Number: US-B.I. PHARMACEUTICALS,INC./RIDGEFIELD-2012-BP-26885BP

PATIENT
  Sex: Male

DRUGS (8)
  1. SPIRIVA [Suspect]
     Indication: EMPHYSEMA
     Dosage: 18 MCG
     Route: 055
     Dates: start: 20120926, end: 20121022
  2. OMEPRAZOLE [Concomitant]
     Route: 048
  3. CARVEDILOL [Concomitant]
     Route: 048
  4. DEPAKOTE [Concomitant]
     Route: 048
  5. SERTRALINE [Concomitant]
     Route: 048
  6. LOVASTATIN [Concomitant]
     Indication: BLOOD CHOLESTEROL INCREASED
     Route: 048
  7. LISINOPRIL [Concomitant]
     Indication: HYPERTENSION
     Route: 048
  8. ASPIRIN [Concomitant]
     Route: 048

REACTIONS (2)
  - Chest discomfort [Recovered/Resolved]
  - Headache [Recovered/Resolved]
